FAERS Safety Report 8270616-3 (Version None)
Quarter: 2012Q2

REPORT INFORMATION
  Report Type: 
  Country: None (occurrence: None)
  Receive Date: 20120406
  Receipt Date: 20120328
  Transmission Date: 20120825
  Serious: Yes (Other)
  Sender: FDA-Public Use
  Company Number: IMP_05823_2012

PATIENT

DRUGS (1)
  1. DOXYCYCLINE [Suspect]
     Indication: PRODUCT USED FOR UNKNOWN INDICATION
     Dosage: (DF)

REACTIONS (5)
  - OESOPHAGEAL ULCER [None]
  - CHEST PAIN [None]
  - DYSPHAGIA [None]
  - OESOPHAGEAL INJURY [None]
  - ODYNOPHAGIA [None]
